FAERS Safety Report 7280089-5 (Version None)
Quarter: 2011Q1

REPORT INFORMATION
  Report Type: 
  Country: None (occurrence: None)
  Receive Date: 20110208
  Receipt Date: 20110201
  Transmission Date: 20110831
  Serious: Yes (Hospitalization)
  Sender: FDA-Public Use
  Company Number: US-BRISTOL-MYERS SQUIBB COMPANY-15522378

PATIENT
  Age: 62 Year
  Sex: Male
  Weight: 125 kg

DRUGS (11)
  1. LISINOPRIL [Concomitant]
  2. SIMVASTATIN [Concomitant]
  3. FENOFIBRATE [Concomitant]
  4. GABAPENTIN [Concomitant]
  5. TRIAMTERENE [Concomitant]
  6. ALLOPURINOL [Concomitant]
  7. OMACOR [Concomitant]
  8. ATENOLOL [Concomitant]
  9. METFORMIN HCL [Concomitant]
  10. VITAMIN D [Concomitant]
  11. ONGLYZA [Suspect]
     Dosage: 7 MONTHS AGO
     Dates: start: 20100101

REACTIONS (2)
  - DECREASED APPETITE [None]
  - BACK DISORDER [None]
